FAERS Safety Report 5240461-1 (Version None)
Quarter: 2007Q1

REPORT INFORMATION
  Report Type: 
  Country: None (occurrence: None)
  Receive Date: 20061208
  Receipt Date: 20050413
  Transmission Date: 20070707
  Serious: Yes (Other)
  Sender: FDA-Public Use
  Company Number: 2005UW05689

PATIENT
  Age: 84 Year
  Sex: Female
  Weight: 66.224 kg

DRUGS (2)
  1. CRESTOR [Suspect]
     Indication: BLOOD CHOLESTEROL INCREASED
     Dosage: 5 MG QD PO
     Route: 048
  2. LOPRESSOR [Concomitant]

REACTIONS (3)
  - DIARRHOEA [None]
  - FEELING HOT [None]
  - SYNCOPE [None]
